FAERS Safety Report 10048484 (Version 1)
Quarter: 2014Q1

REPORT INFORMATION
  Report Type: Other
  Country: DE (occurrence: DE)
  Receive Date: 20140331
  Receipt Date: 20140331
  Transmission Date: 20141002
  Serious: Yes (Other)
  Sender: FDA-Public Use
  Company Number: DE-BRISTOL-MYERS SQUIBB COMPANY-20562138

PATIENT
  Sex: 0

DRUGS (1)
  1. ABILIFY [Suspect]
     Route: 065

REACTIONS (2)
  - Impulse-control disorder [Unknown]
  - Pathological gambling [Unknown]
